FAERS Safety Report 9313266 (Version 1)
Quarter: 2013Q2

REPORT INFORMATION
  Report Type: Spontaneous
  Country: US (occurrence: US)
  Receive Date: 20130528
  Receipt Date: 20130528
  Transmission Date: 20140414
  Serious: No
  Sender: FDA-Public Use
  Company Number: US-ABBOTT-13P-163-1055697-00

PATIENT
  Sex: Male
  Weight: 97.61 kg

DRUGS (4)
  1. ANDROGEL 1.62% [Suspect]
     Indication: BLOOD TESTOSTERONE DECREASED
     Dosage: 2 PUMP ACTUATIONS
     Dates: start: 20121115, end: 201212
  2. ANDROGEL 1.62% [Suspect]
     Dosage: 3 PUMP ACTUATIONS
     Dates: start: 201212, end: 201301
  3. VITAMINS [Concomitant]
     Indication: PRODUCT USED FOR UNKNOWN INDICATION
     Dosage: DAILY
  4. HERBS [Concomitant]
     Dosage: DAILY

REACTIONS (3)
  - Weight increased [Not Recovered/Not Resolved]
  - Loss of libido [Recovered/Resolved]
  - Organic erectile dysfunction [Recovered/Resolved]
